FAERS Safety Report 8368923-9 (Version None)
Quarter: 2012Q2

REPORT INFORMATION
  Report Type: 
  Country: None (occurrence: None)
  Receive Date: 20120516
  Receipt Date: 20120502
  Transmission Date: 20120825
  Serious: Yes (Other)
  Sender: FDA-Public Use
  Company Number: 2012AP001315

PATIENT
  Age: 64 Year
  Sex: Female

DRUGS (4)
  1. PAROXETINE HCL [Suspect]
     Indication: DEPRESSION
     Dosage: 10 MG;TAB_FILM;PO;QD
     Route: 048
     Dates: start: 20120404, end: 20120410
  2. ASPIRIN [Concomitant]
  3. ATENOLOL [Concomitant]
  4. RAMIPRIL [Concomitant]

REACTIONS (4)
  - BLOOD PRESSURE INCREASED [None]
  - FEELING JITTERY [None]
  - ERYTHEMA [None]
  - EXPIRED DRUG ADMINISTERED [None]
